FAERS Safety Report 4901607-5 (Version None)
Quarter: 2006Q1

REPORT INFORMATION
  Report Type: 
  Country: None (occurrence: None)
  Receive Date: 20060206
  Receipt Date: 20050616
  Transmission Date: 20060701
  Serious: No
  Sender: FDA-Public Use
  Company Number: US-BRISTOL-MYERS SQUIBB COMPANY-13006069

PATIENT
  Age: 45 Year
  Sex: Male
  Weight: 82 kg

DRUGS (6)
  1. TAXOL [Suspect]
     Indication: COLON CANCER METASTATIC
     Route: 042
     Dates: start: 20050615
  2. COMPAZINE [Concomitant]
  3. ANZEMET [Concomitant]
     Indication: PREMEDICATION
  4. DECADRON PHOSPHATE [Concomitant]
     Indication: PREMEDICATION
  5. BENADRYL [Concomitant]
     Indication: PREMEDICATION
  6. ZANTAC [Concomitant]
     Indication: PREMEDICATION

REACTIONS (1)
  - INFUSION SITE REACTION [None]
